FAERS Safety Report 12784628 (Version 3)
Quarter: 2016Q4

REPORT INFORMATION
  Report Type: Spontaneous
  Country: US (occurrence: US)
  Receive Date: 20160927
  Receipt Date: 20161111
  Transmission Date: 20170207
  Serious: Yes (Other)
  Sender: FDA-Public Use
  Company Number: US-JNJFOC-20160920297

PATIENT
  Sex: Male
  Weight: 68.04 kg

DRUGS (2)
  1. XARELTO [Suspect]
     Active Substance: RIVAROXABAN
     Indication: PULMONARY THROMBOSIS
     Dosage: FOR 30 DAYS IN END JUN-2016 OR EARLY JUL-2016
     Route: 048
     Dates: start: 2016, end: 2016
  2. XARELTO [Suspect]
     Active Substance: RIVAROXABAN
     Indication: PULMONARY THROMBOSIS
     Dosage: IN THE EVENING FOR 90 DAYS
     Route: 048
     Dates: start: 2016

REACTIONS (4)
  - Nephrolithiasis [Not Recovered/Not Resolved]
  - Haemorrhage [Unknown]
  - Contusion [Unknown]
  - Impaired healing [Unknown]

NARRATIVE: CASE EVENT DATE: 2016
